FAERS Safety Report 6699869-X (Version None)
Quarter: 2010Q2

REPORT INFORMATION
  Report Type: 
  Country: None (occurrence: None)
  Receive Date: 20100428
  Receipt Date: 20100420
  Transmission Date: 20101027
  Serious: Yes (Other)
  Sender: FDA-Public Use
  Company Number: US-SANOFI-AVENTIS-2010SA023649

PATIENT
  Age: 72 Year
  Sex: Male

DRUGS (9)
  1. CARAC [Suspect]
     Indication: SKIN LESION
     Route: 061
     Dates: end: 20100401
  2. METOPROLOL [Concomitant]
  3. ALL OTHER THERAPEUTIC PRODUCTS [Concomitant]
  4. TAMSULOSIN HYDROCHLORIDE [Concomitant]
  5. NEXIUM [Concomitant]
  6. ASPIRIN [Concomitant]
  7. ALEVE [Concomitant]
  8. ALL OTHER THERAPEUTIC PRODUCTS [Concomitant]
  9. HYDROCODONE BITARTRATE [Concomitant]

REACTIONS (1)
  - RECTAL HAEMORRHAGE [None]
